FAERS Safety Report 10736881 (Version 1)
Quarter: 2015Q1

REPORT INFORMATION
  Report Type: Spontaneous
  Country: US (occurrence: None)
  Receive Date: 20150122
  Receipt Date: 20150122
  Transmission Date: 20150721
  Serious: Yes (Death)
  Sender: FDA-Public Use
  Company Number: None

PATIENT
  Age: 33 Year
  Sex: Male
  Weight: 73.03 kg

DRUGS (1)
  1. LATUDA [Suspect]
     Active Substance: LURASIDONE HYDROCHLORIDE
     Dosage: 1 ADAY, ONCE DAILY , TAKEN BY MOUTH
     Route: 048

REACTIONS (3)
  - Dyspnoea [None]
  - Speech disorder [None]
  - Muscle spasms [None]

NARRATIVE: CASE EVENT DATE: 20150119
